FAERS Safety Report 6282255-4 (Version None)
Quarter: 2009Q3

REPORT INFORMATION
  Report Type: 
  Country: None (occurrence: None)
  Receive Date: 20090721
  Receipt Date: 20090721
  Transmission Date: 20100115
  Serious: Yes (Other)
  Sender: FDA-Public Use
  Company Number: None

PATIENT
  Age: 18 Year
  Sex: Male
  Weight: 70.7611 kg

DRUGS (2)
  1. CETIRIZINE HCL [Suspect]
     Indication: MULTIPLE ALLERGIES
     Dosage: 10 MG 1 PO QD
     Route: 048
     Dates: start: 20080101
  2. CETIRIZINE HCL [Suspect]
     Indication: RHINITIS ALLERGIC
     Dosage: 10 MG 1 PO QD
     Route: 048
     Dates: start: 20080101

REACTIONS (7)
  - CONDITION AGGRAVATED [None]
  - EYE PRURITUS [None]
  - INFECTION [None]
  - LACRIMATION INCREASED [None]
  - PRODUCT SUBSTITUTION ISSUE [None]
  - SNEEZING [None]
  - THROAT IRRITATION [None]
